FAERS Safety Report 20789482 (Version 1)
Quarter: 2022Q2

REPORT INFORMATION
  Report Type: Spontaneous
  Country: GB (occurrence: GB)
  Receive Date: 20220505
  Receipt Date: 20220505
  Transmission Date: 20220721
  Serious: Yes (Other)
  Sender: FDA-Public Use
  Company Number: GB-NOVARTISPH-NVSC2022GB101275

PATIENT
  Age: 45 Year
  Sex: Female

DRUGS (2)
  1. IMATINIB [Suspect]
     Active Substance: IMATINIB
     Indication: Chordoma
     Dosage: UNK
     Route: 065
     Dates: start: 201905, end: 202008
  2. IMATINIB [Suspect]
     Active Substance: IMATINIB
     Indication: Malignant neoplasm of spinal cord

REACTIONS (4)
  - Chordoma [Unknown]
  - Malignant neoplasm progression [Unknown]
  - Toxicity to various agents [Unknown]
  - Product use in unapproved indication [Unknown]
